FAERS Safety Report 6652049-6 (Version None)
Quarter: 2010Q1

REPORT INFORMATION
  Report Type: 
  Country: None (occurrence: None)
  Receive Date: 20100323
  Receipt Date: 20100308
  Transmission Date: 20100710
  Serious: Yes (Hospitalization)
  Sender: FDA-Public Use
  Company Number: 2010PV000005

PATIENT
  Sex: Male

DRUGS (2)
  1. DEPOCYT [Suspect]
     Indication: METASTASES TO MENINGES
     Dosage: 1X;INTH
     Route: 037
     Dates: start: 20100302
  2. METHYLPREDNISOLONE [Concomitant]

REACTIONS (7)
  - FATIGUE [None]
  - HEADACHE [None]
  - MALIGNANT NEOPLASM PROGRESSION [None]
  - METASTASES TO MENINGES [None]
  - NAUSEA [None]
  - RADICULITIS [None]
  - VOMITING [None]
